FAERS Safety Report 5144337-X (Version None)
Quarter: 2006Q4

REPORT INFORMATION
  Report Type: 
  Country: None (occurrence: None)
  Receive Date: 20061030
  Receipt Date: 20061018
  Transmission Date: 20070319
  Serious: Yes (Hospitalization)
  Sender: FDA-Public Use
  Company Number: US200603002370

PATIENT
  Age: 52 Year
  Sex: Female
  Weight: 113.4 kg

DRUGS (2)
  1. ZYPREXA [Suspect]
     Indication: BIPOLAR DISORDER
     Dosage: 15 MG
     Dates: start: 20020501, end: 20030501
  2. GLIPIZIDE [Concomitant]

REACTIONS (3)
  - CONDITION AGGRAVATED [None]
  - DIABETES MELLITUS [None]
  - MYOCARDIAL INFARCTION [None]
